FAERS Safety Report 4855994-7 (Version None)
Quarter: 2005Q4

REPORT INFORMATION
  Report Type: 
  Country: None (occurrence: None)
  Receive Date: 20051214
  Receipt Date: 20051205
  Transmission Date: 20060501
  Serious: Yes (Other)
  Sender: FDA-Public Use
  Company Number: 2005JP002073

PATIENT
  Age: 4 Year
  Sex: Male

DRUGS (9)
  1. PROGRAF [Suspect]
     Indication: LIVER TRANSPLANT
     Dosage: SEE IMAGE
     Route: 048
     Dates: end: 20051024
  2. PROGRAF [Suspect]
     Indication: LIVER TRANSPLANT
     Dosage: SEE IMAGE
     Route: 048
     Dates: start: 20051025
  3. FLIXOTIDE ^ALLEN + HANSBURYS^ (FLUTICASONE PROPIONATE) [Suspect]
     Dosage: SEE IMAGE
     Dates: start: 20050201, end: 20050101
  4. FLIXOTIDE ^ALLEN + HANSBURYS^ (FLUTICASONE PROPIONATE) [Suspect]
     Dosage: SEE IMAGE
     Dates: start: 20050913
  5. PREDNISONE [Concomitant]
  6. ASPIRIN [Concomitant]
  7. ACYCLOVIR [Concomitant]
  8. OMEPRAZOLE [Concomitant]
  9. VITAMIN E [Concomitant]

REACTIONS (2)
  - DRUG INTERACTION [None]
  - DRUG LEVEL FLUCTUATING [None]
